FAERS Safety Report 6879354-2 (Version None)
Quarter: 2010Q3

REPORT INFORMATION
  Report Type: 
  Country: None (occurrence: None)
  Receive Date: 20100728
  Receipt Date: 20100716
  Transmission Date: 20110219
  Serious: Yes (Life-Threatening)
  Sender: FDA-Public Use
  Company Number: DE-JNJFOC-20100706695

PATIENT
  Age: 7 Decade
  Sex: Male

DRUGS (5)
  1. REOPRO [Suspect]
     Indication: MYOCARDIAL INFARCTION
     Route: 042
  2. REOPRO [Suspect]
     Route: 042
  3. ACETYLSALICYLIC ACID SRT [Concomitant]
     Indication: MYOCARDIAL INFARCTION
  4. CLOPIDOGREL [Concomitant]
     Indication: MYOCARDIAL INFARCTION
  5. HEPARIN [Concomitant]
     Indication: MYOCARDIAL INFARCTION

REACTIONS (2)
  - CARDIAC TAMPONADE [None]
  - GASTROINTESTINAL HAEMORRHAGE [None]
